FAERS Safety Report 10152518 (Version 1)
Quarter: 2014Q2

REPORT INFORMATION
  Report Type: Spontaneous
  Country: US (occurrence: None)
  Receive Date: 20140502
  Receipt Date: 20140502
  Transmission Date: 20141212
  Serious: No
  Sender: FDA-Public Use
  Company Number: None

PATIENT
  Age: 69 Year
  Sex: Female
  Weight: 87.09 kg

DRUGS (6)
  1. VENLAFAXINE [Suspect]
     Route: 048
     Dates: start: 20140422, end: 20140423
  2. VITAMIN E [Concomitant]
  3. D3 [Concomitant]
  4. FISH OIL [Concomitant]
  5. MAGNISIUM WITH ZINC [Concomitant]
  6. ST JOHNS WO [Concomitant]

REACTIONS (1)
  - Insomnia [None]
